FAERS Safety Report 8505466-3 (Version None)
Quarter: 2012Q2

REPORT INFORMATION
  Report Type: 
  Country: None (occurrence: None)
  Receive Date: 20120405
  Receipt Date: 20090429
  Transmission Date: 20120825
  Serious: Yes (Other)
  Sender: FDA-Public Use
  Company Number: PHEH2008US11199

PATIENT
  Age: 51 Year
  Sex: Female
  Weight: 112 kg

DRUGS (10)
  1. HUMALOG [Concomitant]
  2. VITAMIN B COMPLEX (CALCIUM PANTOTHENATE, NICOTINAMIDE, PYRIDOXINE HYDR [Concomitant]
  3. CRESTOR (ROSUVASTIN CALCIUM) [Concomitant]
  4. CALCIUM W/VITAMIN D NOS (CALCIUM, VITAMIN D NOS) [Concomitant]
  5. PROTONIX [Concomitant]
  6. INSULIN (INSULIN) [Concomitant]
  7. RECLAST [Suspect]
     Indication: OSTEOPOROSIS POSTMENOPAUSAL
     Dosage: 5 MG, ONCE SINGLE, INTRAVENOUS
     Route: 042
     Dates: start: 20081204, end: 20081204
  8. MULTIVITAMINS (ASCORBIC ACID, ERGOCALCIFEROL, FOLIC ACID, NICOTINAMIDE [Concomitant]
  9. DIOVAN HCT [Concomitant]
  10. EFEXOR XR (VENLAFAXINE) [Concomitant]

REACTIONS (5)
  - BONE PAIN [None]
  - NAUSEA [None]
  - MYALGIA [None]
  - PAIN [None]
  - PYREXIA [None]
